FAERS Safety Report 9908260 (Version 1)
Quarter: 2014Q1

REPORT INFORMATION
  Report Type: Spontaneous
  Country: US (occurrence: None)
  Receive Date: 20140214
  Receipt Date: 20140214
  Transmission Date: 20141002
  Serious: No
  Sender: FDA-Public Use
  Company Number: None

PATIENT
  Sex: 0

DRUGS (2)
  1. CARDENE [Suspect]
     Dosage: 40 MG IN 20ML 90.2 INJECTABLE?1 GALAXY SINGLE DOSE
     Route: 042
  2. NEXTERONE [Suspect]
     Dosage: 360 MG/200ML (1.8 M    INJECTABLE?1 GALAXY SINGLE DOSE
     Route: 042

REACTIONS (2)
  - Circumstance or information capable of leading to medication error [None]
  - Product outer packaging issue [None]
